FAERS Safety Report 5205851-1 (Version None)
Quarter: 2007Q1

REPORT INFORMATION
  Report Type: 
  Country: None (occurrence: None)
  Receive Date: 20070111
  Receipt Date: 20061212
  Transmission Date: 20070707
  Serious: Yes (Other)
  Sender: FDA-Public Use
  Company Number: 2006UW28058

PATIENT
  Sex: Female

DRUGS (1)
  1. EMLA [Suspect]
     Route: 061

REACTIONS (2)
  - HYPOGLYCAEMIA [None]
  - SYNCOPE [None]
